FAERS Safety Report 4459967-8 (Version None)
Quarter: 2004Q3

REPORT INFORMATION
  Report Type: 
  Country: None (occurrence: None)
  Receive Date: 20040928
  Receipt Date: 20030916
  Transmission Date: 20050211
  Serious: No
  Sender: FDA-Public Use
  Company Number: US-GLAXOSMITHKLINE-A0426140A

PATIENT
  Age: 16 Year
  Sex: Female

DRUGS (3)
  1. SEREVENT [Suspect]
     Indication: ASTHMA
     Dosage: 1 PER DAY
     Route: 055
     Dates: start: 20030914, end: 20030914
  2. ALBUTEROL [Concomitant]
  3. QVAR 40 [Concomitant]

REACTIONS (6)
  - COUGH [None]
  - DIZZINESS [None]
  - DRY MOUTH [None]
  - ERYTHEMA [None]
  - HEADACHE [None]
  - THROAT IRRITATION [None]
